FAERS Safety Report 6312200-4 (Version None)
Quarter: 2009Q3

REPORT INFORMATION
  Report Type: 
  Country: None (occurrence: None)
  Receive Date: 20090817
  Receipt Date: 20090805
  Transmission Date: 20100115
  Serious: Yes (Other)
  Sender: FDA-Public Use
  Company Number: JP-PFIZER INC-2009251694

PATIENT
  Age: 75 Year

DRUGS (7)
  1. RIFABUTIN [Suspect]
     Indication: MYCOBACTERIUM AVIUM COMPLEX INFECTION
     Dosage: 450 MG, 1X/DAY
     Route: 048
     Dates: start: 20090624, end: 20090708
  2. KLARICID [Concomitant]
     Dosage: UNK
     Route: 048
     Dates: start: 20090624
  3. PRULIFLOXACIN [Concomitant]
     Dosage: UNK
     Route: 048
     Dates: start: 20090624
  4. FLUTIDE DISKUS [Concomitant]
     Dosage: UNK
     Dates: start: 20040714
  5. SEREVENT [Concomitant]
     Dates: start: 20050824
  6. MUCODYNE [Concomitant]
     Dosage: UNK
     Route: 048
     Dates: start: 20040714
  7. RANITIDINE HYDROCHLORIDE [Concomitant]
     Dosage: UNK
     Route: 048
     Dates: start: 20080409

REACTIONS (3)
  - BONE MARROW FAILURE [None]
  - HEPATIC FUNCTION ABNORMAL [None]
  - PYREXIA [None]
